FAERS Safety Report 8136512-7 (Version None)
Quarter: 2012Q1

REPORT INFORMATION
  Report Type: 
  Country: None (occurrence: None)
  Receive Date: 20120214
  Receipt Date: 20120201
  Transmission Date: 20120608
  Serious: Yes (Hospitalization, Other)
  Sender: FDA-Public Use
  Company Number: PHHY2012AU008430

PATIENT
  Sex: Male

DRUGS (6)
  1. LITHIUM CARBONATE [Concomitant]
     Dosage: 250 MG MANE
     Route: 048
  2. VALPROATE SODIUM [Concomitant]
     Dosage: 500 MG, MANE
     Route: 048
  3. LITHIUM CARBONATE [Concomitant]
     Dosage: 1000 MG, NOCTE
     Route: 048
  4. VALPROATE SODIUM [Concomitant]
     Dosage: 1000 MG, NOCTE
     Route: 048
  5. CLOZARIL [Suspect]
     Dosage: UNK UKN, UNK
     Dates: start: 20111222, end: 20120109
  6. OLANZAPINE [Concomitant]
     Dosage: 10 MG, BID
     Route: 048

REACTIONS (8)
  - TROPONIN I INCREASED [None]
  - NEUTROPHIL COUNT INCREASED [None]
  - TACHYCARDIA [None]
  - C-REACTIVE PROTEIN INCREASED [None]
  - MYOCARDITIS [None]
  - BLOOD CREATINE PHOSPHOKINASE INCREASED [None]
  - WHITE BLOOD CELL COUNT INCREASED [None]
  - BLOOD THYROID STIMULATING HORMONE INCREASED [None]
